FAERS Safety Report 18440733 (Version 1)
Quarter: 2020Q4

REPORT INFORMATION
  Report Type: Spontaneous
  Country: CN (occurrence: CN)
  Receive Date: 20201029
  Receipt Date: 20201029
  Transmission Date: 20210114
  Serious: Yes (Other)
  Sender: FDA-Public Use
  Company Number: CN-PFIZER INC-2020417470

PATIENT
  Age: 31 Year
  Sex: Male
  Weight: 49 kg

DRUGS (8)
  1. METHOTREXATE. [Suspect]
     Active Substance: METHOTREXATE
     Indication: B-CELL LYMPHOMA
     Dosage: 10 ML, 1X/DAY
     Route: 041
     Dates: start: 20200923, end: 20200923
  2. SODIUM CHLORIDE. [Concomitant]
     Active Substance: SODIUM CHLORIDE
     Dosage: 450 ML, 1X/DAY
     Route: 041
     Dates: start: 20200922, end: 20200922
  3. SODIUM CHLORIDE. [Suspect]
     Active Substance: SODIUM CHLORIDE
     Indication: VEHICLE SOLUTION USE
     Dosage: 100 ML, 1X/DAY
     Route: 041
     Dates: start: 20200923, end: 20200923
  4. SODIUM CHLORIDE. [Concomitant]
     Active Substance: SODIUM CHLORIDE
     Dosage: 500 ML, 1X/DAY
     Route: 041
     Dates: start: 20200923, end: 20200923
  5. MABTHERA [Suspect]
     Active Substance: RITUXIMAB
     Dosage: 0.5 G, 1X/DAY
     Route: 041
     Dates: start: 20200922, end: 20200922
  6. SODIUM CHLORIDE. [Concomitant]
     Active Substance: SODIUM CHLORIDE
     Indication: VEHICLE SOLUTION USE
     Dosage: 90 ML, 1X/DAY
     Route: 041
     Dates: start: 20200922, end: 20200922
  7. MABTHERA [Suspect]
     Active Substance: RITUXIMAB
     Indication: B-CELL LYMPHOMA
     Dosage: 0.1 G, 1X/DAY
     Route: 041
     Dates: start: 20200922, end: 20200922
  8. METHOTREXATE. [Suspect]
     Active Substance: METHOTREXATE
     Dosage: 38 ML, 1X/DAY
     Route: 041
     Dates: start: 20200923, end: 20200923

REACTIONS (1)
  - Full blood count decreased [Recovering/Resolving]

NARRATIVE: CASE EVENT DATE: 20201005
